FAERS Safety Report 9452840 (Version 2)
Quarter: 2014Q2

REPORT INFORMATION
  Report Type: Report from Study
  Country: CA (occurrence: CA)
  Receive Date: 20130812
  Receipt Date: 20140523
  Transmission Date: 20141212
  Serious: Yes (Hospitalization)
  Sender: FDA-Public Use
  Company Number: CA-JNJFOC-20130804489

PATIENT
  Age: 68 Year
  Sex: Female
  Weight: 71 kg

DRUGS (16)
  1. REMICADE [Suspect]
     Indication: RHEUMATOID ARTHRITIS
     Route: 042
     Dates: start: 20130814
  2. REMICADE [Suspect]
     Indication: RHEUMATOID ARTHRITIS
     Route: 042
     Dates: start: 20110301
  3. ESTRADIOL [Concomitant]
     Dosage: DAILY
     Route: 065
  4. ALENDRONATE [Concomitant]
     Route: 065
  5. VALSARTAN [Concomitant]
     Dosage: 12.7/160 MG
     Route: 065
  6. ASA [Concomitant]
     Dosage: DAILY
     Route: 065
  7. SYNTHROID [Concomitant]
     Route: 065
  8. WELLBUTRIN  XL [Concomitant]
     Route: 065
  9. WELLBUTRIN  XL [Concomitant]
     Route: 065
  10. NEXIUM [Concomitant]
     Route: 065
  11. COLACE [Concomitant]
     Route: 065
  12. PREDNISONE [Concomitant]
     Route: 065
  13. PREDNISONE [Concomitant]
     Route: 065
  14. LYRICA [Concomitant]
     Dosage: DAILY
     Route: 065
  15. PANTOLOC [Concomitant]
     Dosage: DAILY
     Route: 065
  16. FENOFIBRATE [Concomitant]
     Dosage: DAILY
     Route: 065

REACTIONS (1)
  - Pulmonary embolism [Recovered/Resolved]
